FAERS Safety Report 5237885-5 (Version None)
Quarter: 2007Q1

REPORT INFORMATION
  Report Type: 
  Country: None (occurrence: None)
  Receive Date: 20070209
  Receipt Date: 20061013
  Transmission Date: 20070707
  Serious: Yes (Hospitalization, Other)
  Sender: FDA-Public Use
  Company Number: TRP_0081_2005

PATIENT
  Age: 67 Year
  Sex: Male
  Weight: 70.37 kg

DRUGS (4)
  1. RIBASPHERE [Suspect]
     Indication: HEPATITIS C
     Dosage: 1200 MG QDAY PO
     Route: 048
     Dates: start: 20050125, end: 20050208
  2. INFERGEN [Suspect]
     Indication: HEPATITIS C
     Dosage: 15 MCG QDAY SC
     Route: 058
     Dates: start: 20050125, end: 20050831
  3. RIBASPHERE [Suspect]
     Indication: HEPATITIS C
     Dosage: 600 MG QDAY PO
     Route: 048
     Dates: start: 20050209, end: 20050209
  4. RIBASPHERE [Suspect]
     Indication: HEPATITIS C
     Dosage: 600 MG QDAY PO
     Route: 048
     Dates: start: 20050211, end: 20050420

REACTIONS (12)
  - ANEURYSM [None]
  - ASTHENIA [None]
  - CRANIOPHARYNGIOMA [None]
  - DIZZINESS [None]
  - GERM CELL CANCER [None]
  - HAEMOGLOBIN DECREASED [None]
  - LYMPHOMA [None]
  - MENINGIOMA [None]
  - METASTASIS [None]
  - ORTHOSTATIC HYPOTENSION [None]
  - SYNCOPE [None]
  - TREATMENT NONCOMPLIANCE [None]
